FAERS Safety Report 7864814-8 (Version None)
Quarter: 2011Q4

REPORT INFORMATION
  Report Type: 
  Country: None (occurrence: None)
  Receive Date: 20111028
  Receipt Date: 20100707
  Transmission Date: 20120403
  Serious: No
  Sender: FDA-Public Use
  Company Number: US-GLAXOSMITHKLINE-A0868965A

PATIENT
  Age: 77 Year
  Sex: Female

DRUGS (11)
  1. ATENOLOL [Concomitant]
  2. CENTRUM [Concomitant]
  3. ASPIRIN [Concomitant]
  4. KLOR-CON M [Concomitant]
  5. LOVASTATIN [Concomitant]
  6. LASIX [Concomitant]
  7. INSULIN [Concomitant]
  8. ADVAIR DISKUS 100/50 [Suspect]
     Indication: ASTHMA
     Dosage: 1PUFF TWICE PER DAY
     Route: 055
     Dates: start: 20100630, end: 20100706
  9. GLIPIZIDE [Concomitant]
  10. CALCIUM CARBONATE [Concomitant]
  11. COZAAR [Concomitant]

REACTIONS (4)
  - DIZZINESS [None]
  - ADVERSE EVENT [None]
  - PRODUCT QUALITY ISSUE [None]
  - NAUSEA [None]
